FAERS Safety Report 19951485 (Version 1)
Quarter: 2021Q4

REPORT INFORMATION
  Report Type: Spontaneous
  Country: CA (occurrence: CA)
  Receive Date: 20211013
  Receipt Date: 20211013
  Transmission Date: 20220303
  Serious: Yes (Hospitalization, Other)
  Sender: FDA-Public Use
  Company Number: CA-TEVA-2021-CA-1963979

PATIENT
  Age: 61 Year
  Sex: Male

DRUGS (1)
  1. METHOTREXATE [Suspect]
     Active Substance: METHOTREXATE
     Indication: Diffuse large B-cell lymphoma
     Route: 065

REACTIONS (4)
  - Acute kidney injury [Recovered/Resolved]
  - Drug level increased [Recovered/Resolved]
  - Status epilepticus [Recovered/Resolved]
  - Toxicity to various agents [Recovered/Resolved]
